FAERS Safety Report 17876915 (Version 2)
Quarter: 2020Q2

REPORT INFORMATION
  Report Type: Spontaneous
  Country: JP (occurrence: JP)
  Receive Date: 20200609
  Receipt Date: 20200623
  Transmission Date: 20200714
  Serious: Yes (Hospitalization, Other)
  Sender: FDA-Public Use
  Company Number: JP-ELI_LILLY_AND_COMPANY-JP202006001346

PATIENT
  Age: 50 Year
  Sex: Female

DRUGS (3)
  1. OLUMIANT [Suspect]
     Active Substance: BARICITINIB
     Indication: RHEUMATOID ARTHRITIS
     Route: 048
  2. MIYA-BM [Concomitant]
     Active Substance: CLOSTRIDIUM BUTYRICUM SPORES STRAIN M-55
     Dosage: UNK, TID
     Route: 048
  3. BETAMETHASONE. [Concomitant]
     Active Substance: BETAMETHASONE
     Dosage: 0.25 MG
     Route: 048

REACTIONS (2)
  - Pneumonia [Unknown]
  - Putamen haemorrhage [Unknown]

NARRATIVE: CASE EVENT DATE: 20200601
